FAERS Safety Report 6203918-2 (Version None)
Quarter: 2009Q2

REPORT INFORMATION
  Report Type: 
  Country: None (occurrence: None)
  Receive Date: 20090527
  Receipt Date: 20090519
  Transmission Date: 20091009
  Serious: Yes (Other)
  Sender: FDA-Public Use
  Company Number: A0785048A

PATIENT
  Age: 76 Year
  Sex: Male

DRUGS (3)
  1. REQUIP XL [Suspect]
     Indication: PARKINSON'S DISEASE
     Dosage: 8MG PER DAY
     Route: 048
     Dates: start: 20090501
  2. REQUIP [Suspect]
     Indication: PARKINSON'S DISEASE
     Dosage: 2MG EIGHT TIMES PER DAY
     Route: 048
     Dates: start: 20080501, end: 20090401
  3. LEVODOPA [Concomitant]

REACTIONS (6)
  - CONFUSIONAL STATE [None]
  - DRUG INEFFECTIVE [None]
  - LIBIDO INCREASED [None]
  - MEDICATION RESIDUE [None]
  - PAIN [None]
  - PARKINSON'S DISEASE [None]
